FAERS Safety Report 5454010-6 (Version None)
Quarter: 2007Q3

REPORT INFORMATION
  Report Type: 
  Country: None (occurrence: None)
  Receive Date: 20070917
  Receipt Date: 20070709
  Transmission Date: 20080115
  Serious: Yes (Other)
  Sender: FDA-Public Use
  Company Number: US-ASTRAZENECA-2006UW04739

PATIENT
  Age: 552 Month
  Sex: Female

DRUGS (4)
  1. SEROQUEL [Suspect]
     Indication: HALLUCINATION
     Dosage: 200 MG TO 400 MG
     Route: 048
     Dates: start: 20030201, end: 20050501
  2. SEROQUEL [Suspect]
     Indication: BIPOLAR DISORDER
     Dosage: 200 MG TO 400 MG
     Route: 048
     Dates: start: 20030201, end: 20050501
  3. RISPERDAL [Suspect]
     Indication: HALLUCINATION
  4. RISPERDAL [Suspect]
     Indication: BIPOLAR DISORDER

REACTIONS (2)
  - PANCREATITIS [None]
  - TYPE 2 DIABETES MELLITUS [None]
